FAERS Safety Report 25550140 (Version 1)
Quarter: 2025Q3

REPORT INFORMATION
  Report Type: Spontaneous
  Country: EU (occurrence: EU)
  Receive Date: 20250714
  Receipt Date: 20250714
  Transmission Date: 20251021
  Serious: Yes (Other)
  Sender: MYLAN
  Company Number: None

PATIENT
  Age: 67 Year
  Sex: Female
  Weight: 66 kg

DRUGS (24)
  1. TAHOR [Suspect]
     Active Substance: ATORVASTATIN CALCIUM
     Indication: Dyslipidaemia
     Dosage: 1 DOSAGE FORM, QD (1 TABLET PER DAY)
     Dates: start: 20231003
  2. TAHOR [Suspect]
     Active Substance: ATORVASTATIN CALCIUM
     Dosage: 1 DOSAGE FORM, QD (1 TABLET PER DAY)
     Route: 048
     Dates: start: 20231003
  3. TAHOR [Suspect]
     Active Substance: ATORVASTATIN CALCIUM
     Dosage: 1 DOSAGE FORM, QD (1 TABLET PER DAY)
     Route: 048
     Dates: start: 20231003
  4. TAHOR [Suspect]
     Active Substance: ATORVASTATIN CALCIUM
     Dosage: 1 DOSAGE FORM, QD (1 TABLET PER DAY)
     Dates: start: 20231003
  5. CARBIMAZOLE [Suspect]
     Active Substance: CARBIMAZOLE
     Indication: Graves^ disease
     Dosage: 1 DOSAGE FORM, QD (1 TABLET PER DAY)
     Dates: start: 20250109, end: 20250414
  6. CARBIMAZOLE [Suspect]
     Active Substance: CARBIMAZOLE
     Dosage: 1 DOSAGE FORM, QD (1 TABLET PER DAY)
     Dates: start: 20250109, end: 20250414
  7. CARBIMAZOLE [Suspect]
     Active Substance: CARBIMAZOLE
     Dosage: 1 DOSAGE FORM, QD (1 TABLET PER DAY)
     Route: 048
     Dates: start: 20250109, end: 20250414
  8. CARBIMAZOLE [Suspect]
     Active Substance: CARBIMAZOLE
     Dosage: 1 DOSAGE FORM, QD (1 TABLET PER DAY)
     Route: 048
     Dates: start: 20250109, end: 20250414
  9. CARBIMAZOLE [Suspect]
     Active Substance: CARBIMAZOLE
     Dosage: 1 DOSAGE FORM, QOD (1 TABLET EVERY OTHER DAY)
     Dates: start: 20250415
  10. CARBIMAZOLE [Suspect]
     Active Substance: CARBIMAZOLE
     Dosage: 1 DOSAGE FORM, QOD (1 TABLET EVERY OTHER DAY)
     Dates: start: 20250415
  11. CARBIMAZOLE [Suspect]
     Active Substance: CARBIMAZOLE
     Dosage: 1 DOSAGE FORM, QOD (1 TABLET EVERY OTHER DAY)
     Route: 048
     Dates: start: 20250415
  12. CARBIMAZOLE [Suspect]
     Active Substance: CARBIMAZOLE
     Dosage: 1 DOSAGE FORM, QOD (1 TABLET EVERY OTHER DAY)
     Route: 048
     Dates: start: 20250415
  13. AUBAGIO [Suspect]
     Active Substance: TERIFLUNOMIDE
     Indication: Multiple sclerosis
  14. AUBAGIO [Suspect]
     Active Substance: TERIFLUNOMIDE
     Route: 048
  15. AUBAGIO [Suspect]
     Active Substance: TERIFLUNOMIDE
     Route: 048
  16. AUBAGIO [Suspect]
     Active Substance: TERIFLUNOMIDE
  17. COVERAM [Suspect]
     Active Substance: AMLODIPINE\PERINDOPRIL
     Indication: Hypertension
     Dosage: 2 DOSAGE FORM, QD (2 TABLET PER DAY)
     Dates: start: 202410
  18. COVERAM [Suspect]
     Active Substance: AMLODIPINE\PERINDOPRIL
     Dosage: 2 DOSAGE FORM, QD (2 TABLET PER DAY)
     Route: 048
     Dates: start: 202410
  19. COVERAM [Suspect]
     Active Substance: AMLODIPINE\PERINDOPRIL
     Dosage: 2 DOSAGE FORM, QD (2 TABLET PER DAY)
     Route: 048
     Dates: start: 202410
  20. COVERAM [Suspect]
     Active Substance: AMLODIPINE\PERINDOPRIL
     Dosage: 2 DOSAGE FORM, QD (2 TABLET PER DAY)
     Dates: start: 202410
  21. KARDEGIC [Suspect]
     Active Substance: ASPIRIN DL-LYSINE
     Indication: Product used for unknown indication
     Dosage: 1 DOSAGE FORM, QD (POWDER FOR ORAL SOLUTION IN SACHET, 1 SACHET PER DAY)
     Dates: start: 202205
  22. KARDEGIC [Suspect]
     Active Substance: ASPIRIN DL-LYSINE
     Dosage: 1 DOSAGE FORM, QD (POWDER FOR ORAL SOLUTION IN SACHET, 1 SACHET PER DAY)
     Route: 048
     Dates: start: 202205
  23. KARDEGIC [Suspect]
     Active Substance: ASPIRIN DL-LYSINE
     Dosage: 1 DOSAGE FORM, QD (POWDER FOR ORAL SOLUTION IN SACHET, 1 SACHET PER DAY)
     Route: 048
     Dates: start: 202205
  24. KARDEGIC [Suspect]
     Active Substance: ASPIRIN DL-LYSINE
     Dosage: 1 DOSAGE FORM, QD (POWDER FOR ORAL SOLUTION IN SACHET, 1 SACHET PER DAY)
     Dates: start: 202205

REACTIONS (3)
  - Leukopenia [Not Recovered/Not Resolved]
  - Anaemia [Recovering/Resolving]
  - Lymphopenia [Recovering/Resolving]

NARRATIVE: CASE EVENT DATE: 20250224
